FAERS Safety Report 11245592 (Version 1)
Quarter: 2015Q3

REPORT INFORMATION
  Report Type: Spontaneous
  Country: US (occurrence: US)
  Receive Date: 20150707
  Receipt Date: 20150707
  Transmission Date: 20151125
  Serious: Yes (Other)
  Sender: FDA-Public Use
  Company Number: US-B.I. PHARMACEUTICALS,INC./RIDGEFIELD-2015-BI-36450BP

PATIENT
  Sex: Female

DRUGS (1)
  1. JARDIANCE [Suspect]
     Active Substance: EMPAGLIFLOZIN
     Indication: TYPE 1 DIABETES MELLITUS
     Dosage: 25 MG
     Route: 048
     Dates: end: 20150630

REACTIONS (5)
  - Dehydration [Not Recovered/Not Resolved]
  - Diabetic ketoacidosis [Unknown]
  - Hypotension [Unknown]
  - Abdominal pain [Unknown]
  - Product use issue [Recovered/Resolved]
